FAERS Safety Report 9869926 (Version 3)
Quarter: 2014Q2

REPORT INFORMATION
  Report Type: Spontaneous
  Country: US (occurrence: None)
  Receive Date: 20140203
  Receipt Date: 20140514
  Transmission Date: 20141212
  Serious: Yes (Other)
  Sender: FDA-Public Use
  Company Number: ADR-2014-00147

PATIENT
  Age: 56 Year
  Sex: Female

DRUGS (3)
  1. BACLOFEN [Suspect]
     Indication: MUSCLE SPASTICITY
     Dosage: SEE B5
  2. NARCOTICS [Suspect]
  3. UNSPECIFIED INGREDIENT [Suspect]

REACTIONS (12)
  - Cerebrospinal fluid leakage [None]
  - Kidney infection [None]
  - Muscle spasms [None]
  - Drug ineffective [None]
  - Device leakage [None]
  - Implant site swelling [None]
  - Blood pressure decreased [None]
  - Nausea [None]
  - Vomiting [None]
  - Headache [None]
  - Sepsis [None]
  - Effusion [None]
